FAERS Safety Report 9166497 (Version 1)
Quarter: 2013Q1

REPORT INFORMATION
  Report Type: Spontaneous
  Country: US (occurrence: US)
  Receive Date: 20130315
  Receipt Date: 20130315
  Transmission Date: 20140127
  Serious: Yes (Life-Threatening, Other)
  Sender: FDA-Public Use
  Company Number: CHPA2013US004543

PATIENT
  Age: 50 Year
  Sex: Female

DRUGS (5)
  1. RITEAID PLP [Suspect]
     Indication: SMOKING CESSATION THERAPY
     Dosage: 14 MG, QD
     Route: 062
     Dates: start: 20130304
  2. RITEAID PLP [Suspect]
     Dosage: 7 MG, UNK
     Route: 062
  3. RITEAID PLP [Suspect]
     Dosage: 14 MG, UNK
     Route: 062
  4. RITEAID PLP [Suspect]
     Dosage: 21 MG, UNK
     Route: 062
  5. GEODON [Concomitant]

REACTIONS (4)
  - Chest pain [Recovered/Resolved]
  - Hypertension [Unknown]
  - Chest discomfort [Unknown]
  - Drug effect decreased [Unknown]
